FAERS Safety Report 17620106 (Version 1)
Quarter: 2020Q2

REPORT INFORMATION
  Report Type: Spontaneous
  Country: US (occurrence: US)
  Receive Date: 20200403
  Receipt Date: 20200403
  Transmission Date: 20200713
  Serious: No
  Sender: FDA-Public Use
  Company Number: US-ALEXION PHARMACEUTICALS INC.-A202004511

PATIENT
  Age: 32 Year
  Sex: Male

DRUGS (1)
  1. STRENSIQ [Suspect]
     Active Substance: ASFOTASE ALFA
     Indication: HYPOPHOSPHATASIA
     Dosage: UNK
     Route: 065

REACTIONS (6)
  - Stress [Unknown]
  - Injection site mass [Unknown]
  - Injection site erythema [Unknown]
  - Skin disorder [Unknown]
  - Anxiety [Unknown]
  - Pain [Unknown]
